FAERS Safety Report 20589492 (Version 1)
Quarter: 2022Q1

REPORT INFORMATION
  Report Type: Spontaneous
  Country: US (occurrence: None)
  Receive Date: 20220314
  Receipt Date: 20220314
  Transmission Date: 20220424
  Serious: No
  Sender: FDA-Public Use
  Company Number: None

PATIENT
  Sex: Female

DRUGS (1)
  1. ZEJULA [Suspect]
     Active Substance: NIRAPARIB
     Indication: Ovarian cancer
     Dosage: 200MG EVERY DAY ORAL?
     Route: 048
     Dates: start: 202201, end: 20220310

REACTIONS (6)
  - Loss of therapeutic response [None]
  - Hepatic neoplasm [None]
  - Neoplasm progression [None]
  - Hepatic lesion [None]
  - Insomnia [None]
  - Platelet count decreased [None]
